FAERS Safety Report 7735377-2 (Version None)
Quarter: 2011Q3

REPORT INFORMATION
  Report Type: 
  Country: None (occurrence: None)
  Receive Date: 20110907
  Receipt Date: 20110829
  Transmission Date: 20111222
  Serious: Yes (Hospitalization)
  Sender: FDA-Public Use
  Company Number: US-JNJFOC-20110403553

PATIENT
  Sex: Male
  Weight: 52.7 kg

DRUGS (10)
  1. REMICADE [Suspect]
     Indication: INFLAMMATORY BOWEL DISEASE
     Route: 042
     Dates: start: 20100722, end: 20100916
  2. ALLEGRA [Concomitant]
  3. OMEPRAZOLE [Concomitant]
  4. FOLIC ACID [Concomitant]
  5. METHOTREXATE [Concomitant]
  6. PROBIOTICS [Concomitant]
  7. HUMIRA [Concomitant]
     Dates: start: 20110318
  8. SINGULAIR [Concomitant]
  9. HUMIRA [Concomitant]
     Dates: start: 20100930
  10. PREDNISONE [Concomitant]

REACTIONS (3)
  - PYREXIA [None]
  - COUGH [None]
  - CHEST PAIN [None]
